FAERS Safety Report 20543875 (Version 1)
Quarter: 2022Q1

REPORT INFORMATION
  Report Type: Spontaneous
  Country: PH (occurrence: PH)
  Receive Date: 20220303
  Receipt Date: 20220303
  Transmission Date: 20220424
  Serious: Yes (Death)
  Sender: FDA-Public Use
  Company Number: PH-NOVOPROD-894643

PATIENT
  Age: 32 Year
  Sex: Male

DRUGS (2)
  1. NOVOSEVEN RT [Suspect]
     Active Substance: COAGULATION FACTOR VIIA RECOMBINANT HUMAN
     Indication: Haemorrhage prophylaxis
  2. NOVOSEVEN RT [Suspect]
     Active Substance: COAGULATION FACTOR VIIA RECOMBINANT HUMAN
     Indication: Haemophilia A with anti factor VIII
     Dosage: 75 MG
     Route: 065
     Dates: start: 20220218

REACTIONS (2)
  - Post procedural haemorrhage [Fatal]
  - Post procedural complication [Fatal]

NARRATIVE: CASE EVENT DATE: 20220221
